FAERS Safety Report 23601464 (Version 1)
Quarter: 2024Q1

REPORT INFORMATION
  Report Type: Spontaneous
  Country: FR (occurrence: FR)
  Receive Date: 20240306
  Receipt Date: 20240306
  Transmission Date: 20240409
  Serious: Yes (Other)
  Sender: FDA-Public Use
  Company Number: FR-SANOFI-01937460

PATIENT
  Age: 39 Year
  Sex: Male

DRUGS (1)
  1. AUBAGIO [Suspect]
     Active Substance: TERIFLUNOMIDE
     Indication: Multiple sclerosis
     Dosage: UNK
     Dates: start: 2017, end: 20240125

REACTIONS (4)
  - Colitis ulcerative [Unknown]
  - Oedematous pancreatitis [Unknown]
  - Haematochezia [Unknown]
  - Frequent bowel movements [Unknown]
